FAERS Safety Report 8179876-0 (Version None)
Quarter: 2012Q1

REPORT INFORMATION
  Report Type: 
  Country: None (occurrence: None)
  Receive Date: 20120302
  Receipt Date: 20120220
  Transmission Date: 20120608
  Serious: Yes (Death)
  Sender: FDA-Public Use
  Company Number: BE-CELGENEUS-013-21880-12022126

PATIENT
  Age: 58 Year
  Sex: Male
  Weight: 106 kg

DRUGS (35)
  1. REVLIMID [Suspect]
     Dosage: 15 MILLIGRAM
     Dates: start: 20101206, end: 20101226
  2. DEXAMETHASONE [Suspect]
     Route: 048
     Dates: start: 20100621, end: 20100624
  3. CYCLOPHOSPHAMIDE [Suspect]
     Dosage: 100 MILLIGRAM
     Route: 048
     Dates: start: 20101206, end: 20101226
  4. CYCLOPHOSPHAMIDE [Suspect]
     Dosage: 100 MILLIGRAM
     Route: 048
     Dates: start: 20120203, end: 20120223
  5. REVLIMID [Suspect]
     Dosage: 25 MILLIGRAM
     Dates: start: 20100521, end: 20100610
  6. REVLIMID [Suspect]
     Dosage: 25 MILLIGRAM
     Dates: start: 20100816, end: 20100905
  7. DEXAMETHASONE [Suspect]
     Route: 048
     Dates: start: 20110106, end: 20110202
  8. CYCLOPHOSPHAMIDE [Suspect]
     Dosage: 100 MILLIGRAM
     Route: 048
     Dates: start: 20110303, end: 20110323
  9. REVLIMID [Suspect]
     Dosage: 25 MILLIGRAM
     Dates: start: 20100621, end: 20100712
  10. REVLIMID [Suspect]
     Dosage: 25 MILLIGRAM
     Dates: start: 20100719, end: 20100808
  11. REVLIMID [Suspect]
     Dosage: 15 MILLIGRAM
     Dates: start: 20110106, end: 20110126
  12. DEXAMETHASONE [Suspect]
     Route: 048
     Dates: start: 20110401, end: 20110415
  13. REVLIMID [Suspect]
     Indication: MULTIPLE MYELOMA
     Dosage: 25 MILLIGRAM
     Dates: start: 20100426, end: 20100516
  14. REVLIMID [Suspect]
     Dosage: 15 MILLIGRAM
     Dates: start: 20110303, end: 20110323
  15. REVLIMID [Suspect]
     Dosage: 15 MILLIGRAM
     Dates: start: 20110503, end: 20110523
  16. CYCLOPHOSPHAMIDE [Suspect]
     Dosage: 100 MILLIGRAM
     Route: 048
     Dates: start: 20110401, end: 20110421
  17. DEXAMETHASONE [Suspect]
     Route: 048
     Dates: start: 20100521, end: 20100524
  18. DEXAMETHASONE [Suspect]
     Route: 048
     Dates: start: 20101206, end: 20110105
  19. ASPIRIN [Concomitant]
     Indication: THROMBOSIS PROPHYLAXIS
     Dosage: 100 MILLIGRAM
     Route: 065
  20. DEXAMETHASONE [Suspect]
     Route: 048
     Dates: start: 20100719, end: 20100722
  21. DEXAMETHASONE [Suspect]
     Route: 048
     Dates: start: 20100913, end: 20100916
  22. DEXAMETHASONE [Suspect]
     Route: 048
     Dates: start: 20110303, end: 20110317
  23. REVLIMID [Suspect]
     Dosage: 10 MILLIGRAM
     Dates: start: 20101108, end: 20101128
  24. DEXAMETHASONE [Suspect]
     Route: 048
     Dates: start: 20100816, end: 20100819
  25. DEXAMETHASONE [Suspect]
     Route: 048
     Dates: start: 20110203, end: 20110206
  26. DEXAMETHASONE [Suspect]
     Route: 048
     Dates: start: 20110503, end: 20110517
  27. CYCLOPHOSPHAMIDE [Suspect]
     Indication: MULTIPLE MYELOMA
     Dosage: 100 MILLIGRAM
     Route: 048
     Dates: start: 20101108, end: 20101128
  28. CYCLOPHOSPHAMIDE [Suspect]
     Dosage: 100 MILLIGRAM
     Route: 048
     Dates: start: 20120106, end: 20120126
  29. CYCLOPHOSPHAMIDE [Suspect]
     Dosage: 100 MILLIGRAM
     Route: 048
     Dates: start: 20110503, end: 20110523
  30. REVLIMID [Suspect]
     Dosage: 25 MILLIGRAM
     Dates: start: 20100913, end: 20101003
  31. REVLIMID [Suspect]
     Dosage: 15 MILLIGRAM
     Dates: start: 20110203, end: 20110223
  32. REVLIMID [Suspect]
     Dosage: 15 MILLIGRAM
     Dates: start: 20110401, end: 20110421
  33. DEXAMETHASONE [Suspect]
     Indication: MULTIPLE MYELOMA
     Dosage: 5.3333 MILLIGRAM
     Route: 048
     Dates: start: 20100426, end: 20100430
  34. DEXAMETHASONE [Suspect]
     Route: 048
     Dates: start: 20100625, end: 20100718
  35. DEXAMETHASONE [Suspect]
     Route: 048
     Dates: start: 20101108, end: 20101205

REACTIONS (1)
  - LUNG NEOPLASM MALIGNANT [None]
